FAERS Safety Report 11001743 (Version 2)
Quarter: 2015Q2

REPORT INFORMATION
  Report Type: Spontaneous
  Country: US (occurrence: US)
  Receive Date: 20150408
  Receipt Date: 20150414
  Transmission Date: 20150821
  Serious: Yes (Other)
  Sender: FDA-Public Use
  Company Number: US-PFIZER INC-2015119100

PATIENT
  Age: 67 Year
  Sex: Female
  Weight: 33.11 kg

DRUGS (3)
  1. SPIRONOLACTONE. [Suspect]
     Active Substance: SPIRONOLACTONE
     Dosage: 100 MG, 2X/DAY
     Route: 048
     Dates: start: 201502
  2. SPIRONOLACTONE. [Suspect]
     Active Substance: SPIRONOLACTONE
     Indication: ALOPECIA
     Dosage: 50 MG, 1X/DAY
     Route: 048
     Dates: start: 201501, end: 201502
  3. SPIRONOLACTONE. [Suspect]
     Active Substance: SPIRONOLACTONE
     Dosage: 100 MG, 1X/DAY
     Route: 048
     Dates: start: 201502, end: 201502

REACTIONS (3)
  - Product use issue [Not Recovered/Not Resolved]
  - Postmenopausal haemorrhage [Not Recovered/Not Resolved]
  - Drug dose omission [Not Recovered/Not Resolved]

NARRATIVE: CASE EVENT DATE: 201501
